FAERS Safety Report 7396655-2 (Version None)
Quarter: 2011Q2

REPORT INFORMATION
  Report Type: 
  Country: None (occurrence: None)
  Receive Date: 20110406
  Receipt Date: 20110325
  Transmission Date: 20111010
  Serious: Yes (Other)
  Sender: FDA-Public Use
  Company Number: FR-SANOFI-AVENTIS-2011SA014924

PATIENT
  Age: 65 Year
  Sex: Male
  Weight: 75 kg

DRUGS (5)
  1. PREVISCAN [Concomitant]
     Indication: ATRIAL FIBRILLATION
     Route: 048
  2. SOTALOL HCL [Concomitant]
     Route: 065
     Dates: end: 20110105
  3. MULTAQ [Suspect]
     Route: 048
     Dates: start: 20110106, end: 20110204
  4. CIPRALAN [Concomitant]
     Route: 048
     Dates: end: 20110106
  5. LIPANTHYL ^THISSEN^ [Concomitant]
     Route: 048

REACTIONS (4)
  - DIZZINESS [None]
  - CONDITION AGGRAVATED [None]
  - PALPITATIONS [None]
  - ATRIAL FIBRILLATION [None]
